FAERS Safety Report 25461509 (Version 1)
Quarter: 2025Q2

REPORT INFORMATION
  Report Type: Spontaneous
  Country: US (occurrence: US)
  Receive Date: 20250620
  Receipt Date: 20250620
  Transmission Date: 20250716
  Serious: No
  Sender: GUERBET
  Company Number: US-GUERBET / LLC-US-20250065

PATIENT

DRUGS (1)
  1. ELUCIREM [Suspect]
     Active Substance: GADOPICLENOL
     Indication: Product used for unknown indication

REACTIONS (1)
  - Urticaria [Unknown]
